FAERS Safety Report 23227291 (Version 1)
Quarter: 2023Q4

REPORT INFORMATION
  Report Type: Report from Study
  Country: US (occurrence: US)
  Receive Date: 20231124
  Receipt Date: 20231124
  Transmission Date: 20240110
  Serious: No
  Sender: FDA-Public Use
  Company Number: US-AstraZeneca-CH-00512805A

PATIENT
  Age: 67 Year
  Sex: Female

DRUGS (2)
  1. STRENSIQ [Suspect]
     Active Substance: ASFOTASE ALFA
     Indication: Hypophosphatasia
     Dosage: UNK
     Route: 065
  2. STRENSIQ [Suspect]
     Active Substance: ASFOTASE ALFA

REACTIONS (10)
  - Renal disorder [Unknown]
  - Osteoporosis [Unknown]
  - Vitamin B6 decreased [Unknown]
  - Fatigue [Not Recovered/Not Resolved]
  - Alanine aminotransferase increased [Unknown]
  - Weight increased [Unknown]
  - Illness [Unknown]
  - Arthralgia [Recovering/Resolving]
  - Obesity [Unknown]
  - Lower limb fracture [Not Recovered/Not Resolved]

NARRATIVE: CASE EVENT DATE: 20220921
